FAERS Safety Report 8901835 (Version 2)
Quarter: 2013Q1

REPORT INFORMATION
  Report Type: Spontaneous
  Country: US (occurrence: None)
  Receive Date: 20121107
  Receipt Date: 20121129
  Transmission Date: 20140127
  Serious: Yes (Hospitalization)
  Sender: FDA-Public Use
  Company Number: US-JNJFOC-20121016587

PATIENT
  Age: 80 Year
  Sex: Male
  Weight: 75.3 kg

DRUGS (2)
  1. DECITABINE [Suspect]
     Indication: ACUTE MYELOID LEUKAEMIA
     Route: 042
     Dates: start: 20120821, end: 2012
  2. BORTEZOMIB [Suspect]
     Indication: ACUTE MYELOID LEUKAEMIA
     Route: 058
     Dates: start: 20120821, end: 2012

REACTIONS (10)
  - Dehydration [None]
  - Toxicity to various agents [None]
  - Anaemia [None]
  - White blood cell count decreased [None]
  - Neutrophil count decreased [None]
  - Platelet count decreased [None]
  - Gait disturbance [None]
  - Dyspnoea [None]
  - Hypotension [None]
  - Fatigue [None]
